FAERS Safety Report 15465394 (Version 2)
Quarter: 2018Q4

REPORT INFORMATION
  Report Type: Spontaneous
  Country: AU (occurrence: AU)
  Receive Date: 20181004
  Receipt Date: 20181220
  Transmission Date: 20190204
  Serious: Yes (Life-Threatening, Hospitalization, Other)
  Sender: FDA-Public Use
  Company Number: AU-BRISTOL-MYERS SQUIBB COMPANY-BMS-2018-089668

PATIENT
  Age: 70 Year
  Sex: Male

DRUGS (2)
  1. HYDREA [Suspect]
     Active Substance: HYDROXYUREA
     Indication: PRODUCT USED FOR UNKNOWN INDICATION
     Dosage: 1000 MG, UNK
     Route: 048
     Dates: end: 201803
  2. HYDREA [Suspect]
     Active Substance: HYDROXYUREA
     Indication: POLYCYTHAEMIA
     Dosage: 500 UNK, UNK
     Route: 048
     Dates: start: 201609, end: 201803

REACTIONS (7)
  - Dry skin [Recovering/Resolving]
  - Pneumonia [Recovering/Resolving]
  - Muscle fibrosis [Unknown]
  - Impaired healing [Recovering/Resolving]
  - Weight decreased [Recovering/Resolving]
  - Ill-defined disorder [Unknown]
  - Wound infection [Recovering/Resolving]

NARRATIVE: CASE EVENT DATE: 201712
